FAERS Safety Report 24691093 (Version 1)
Quarter: 2024Q4

REPORT INFORMATION
  Report Type: Spontaneous
  Country: GB (occurrence: GB)
  Receive Date: 20241203
  Receipt Date: 20241203
  Transmission Date: 20250115
  Serious: Yes (Hospitalization)
  Sender: MYLAN
  Company Number: GB-MYLANLABS-2024M1044139

PATIENT
  Sex: Female

DRUGS (1)
  1. CLOZARIL [Suspect]
     Active Substance: CLOZAPINE
     Indication: Schizophrenia
     Dosage: 350 MILLIGRAM, BID (50 MG MORNING AND 300 MG EVENING)
     Route: 048
     Dates: start: 20140423

REACTIONS (3)
  - Fracture [Unknown]
  - Leukocytosis [Unknown]
  - Neutrophilia [Unknown]
